FAERS Safety Report 6820915-4 (Version None)
Quarter: 2010Q3

REPORT INFORMATION
  Report Type: 
  Country: None (occurrence: None)
  Receive Date: 20100707
  Receipt Date: 20070709
  Transmission Date: 20110219
  Serious: No
  Sender: FDA-Public Use
  Company Number: US-PFIZER INC-2007056101

PATIENT
  Sex: Female
  Weight: 77.272 kg

DRUGS (8)
  1. SERTRALINE [Suspect]
     Indication: ANXIETY
     Dates: start: 20060401, end: 20060401
  2. ZOLOFT [Suspect]
     Indication: ANXIETY
     Dates: start: 20060401, end: 20060401
  3. COZAAR [Concomitant]
  4. TOPROL-XL [Concomitant]
  5. VITAMINS [Concomitant]
  6. ZANTAC [Concomitant]
  7. ACETYLSALICYLIC ACID [Concomitant]
  8. WARFARIN SODIUM [Concomitant]

REACTIONS (2)
  - ADVERSE DRUG REACTION [None]
  - DIARRHOEA [None]
